FAERS Safety Report 4443225-1 (Version None)
Quarter: 2004Q3

REPORT INFORMATION
  Report Type: 
  Country: None (occurrence: None)
  Receive Date: 20040908
  Receipt Date: 20040903
  Transmission Date: 20050211
  Serious: Yes (Death)
  Sender: FDA-Public Use
  Company Number: JP-BRISTOL-MYERS SQUIBB COMPANY-12693578

PATIENT
  Age: 89 Year
  Sex: Male

DRUGS (1)
  1. MAXIPIME [Suspect]
     Indication: PNEUMONIA
     Route: 042
     Dates: start: 20040528, end: 20040605

REACTIONS (1)
  - PERITONITIS [None]
